FAERS Safety Report 23746877 (Version 6)
Quarter: 2024Q2

REPORT INFORMATION
  Report Type: Spontaneous
  Country: DE (occurrence: DE)
  Receive Date: 20240416
  Receipt Date: 20240611
  Transmission Date: 20240716
  Serious: Yes (Other)
  Sender: FDA-Public Use
  Company Number: DE-009507513-2304DEU006917

PATIENT
  Age: 46 Year
  Sex: Female

DRUGS (2)
  1. KEYTRUDA [Suspect]
     Active Substance: PEMBROLIZUMAB
     Indication: Triple negative breast cancer
     Dosage: UNK
     Dates: start: 202301, end: 202307
  2. OLAPARIB [Suspect]
     Active Substance: OLAPARIB
     Indication: Triple negative breast cancer
     Dosage: UNK
     Route: 048
     Dates: start: 202309

REACTIONS (15)
  - Neuropathy peripheral [Not Recovered/Not Resolved]
  - Restlessness [Unknown]
  - Hypertension [Unknown]
  - Alopecia [Not Recovered/Not Resolved]
  - Gait disturbance [Unknown]
  - Pruritus [Unknown]
  - Myalgia [Unknown]
  - Dizziness [Unknown]
  - Headache [Unknown]
  - Blood pressure fluctuation [Unknown]
  - Tachycardia [Unknown]
  - Pruritus [Unknown]
  - Nervousness [Unknown]
  - Arthralgia [Unknown]
  - Paraesthesia [Unknown]

NARRATIVE: CASE EVENT DATE: 20230101
